FAERS Safety Report 8582829-1 (Version None)
Quarter: 2012Q3

REPORT INFORMATION
  Report Type: 
  Country: None (occurrence: None)
  Receive Date: 20120809
  Receipt Date: 20120803
  Transmission Date: 20120928
  Serious: Yes (Hospitalization)
  Sender: FDA-Public Use
  Company Number: IT-ROCHE-1097714

PATIENT
  Sex: Male
  Weight: 62 kg

DRUGS (5)
  1. ZELBORAF [Suspect]
     Indication: METASTATIC MALIGNANT MELANOMA
     Route: 048
     Dates: start: 20120620, end: 20120801
  2. OMEPRAZOLE [Concomitant]
     Route: 048
  3. KEPPRA [Concomitant]
     Indication: CONVULSION
     Route: 048
  4. BISOPROLOL FUMARATE [Concomitant]
     Indication: HYPERTENSION
     Route: 048
  5. TARGIN [Concomitant]
     Indication: PAIN
     Route: 048

REACTIONS (3)
  - ANAEMIA [None]
  - LEUKOPENIA [None]
  - PLATELET COUNT DECREASED [None]
